FAERS Safety Report 18730443 (Version 2)
Quarter: 2021Q1

REPORT INFORMATION
  Report Type: Spontaneous
  Country: US (occurrence: US)
  Receive Date: 20210112
  Receipt Date: 20210119
  Transmission Date: 20210419
  Serious: Yes (Other)
  Sender: FDA-Public Use
  Company Number: US-PFIZER INC-2021002123

PATIENT
  Age: 29 Year
  Sex: Female

DRUGS (3)
  1. NIFEDIPINE. [Interacting]
     Active Substance: NIFEDIPINE
     Dosage: UNK
  2. MAGNESIUM SULFATE. [Suspect]
     Active Substance: MAGNESIUM SULFATE
     Indication: PRE-ECLAMPSIA
     Dosage: UNK
     Route: 042
  3. LABETALOL [Concomitant]
     Active Substance: LABETALOL\LABETALOL HYDROCHLORIDE
     Dosage: UNK
     Route: 042

REACTIONS (3)
  - Neuromuscular blockade [Unknown]
  - Potentiating drug interaction [Unknown]
  - Toxicity to various agents [Unknown]
